FAERS Safety Report 6818824 (Version 3)
Quarter: 2016Q2

REPORT INFORMATION
  Report Type: Report from Study
  Country: JP (occurrence: JP)
  Receive Date: 20081121
  Receipt Date: 20160503
  Transmission Date: 20160815
  Serious: Yes (Other)
  Sender: FDA-Public Use
  Company Number: JP-PFIZER INC-2008095016

PATIENT
  Age: 88 Year
  Sex: Female
  Weight: 40 kg

DRUGS (13)
  1. GASTER [Concomitant]
     Active Substance: FAMOTIDINE
     Dosage: 20 MG, 1X/DAY
     Route: 048
  2. DILTIAZEM HYDROCHLORIDE. [Concomitant]
     Active Substance: DILTIAZEM HYDROCHLORIDE
     Dosage: 100 MG, 1X/DAY
     Route: 048
     Dates: start: 20080205
  3. CYCLOSERINE. [Concomitant]
     Active Substance: CYCLOSERINE
     Indication: INFECTION
     Dosage: 500 MG, 2X/DAY
     Route: 048
  4. CLEANAL [Concomitant]
     Active Substance: FUDOSTEINE
     Indication: INFECTION
     Dosage: 1200 MG, 3X/DAY
     Route: 048
  5. INSULIN [Concomitant]
     Active Substance: INSULIN NOS
     Dosage: UNK
  6. MYCOBUTIN [Suspect]
     Active Substance: RIFABUTIN
     Indication: TUBERCULOSIS
     Dosage: 300 MG, 1X/DAY
     Route: 048
     Dates: start: 20081012, end: 20081019
  7. GASMOTIN [Concomitant]
     Active Substance: MOSAPRIDE CITRATE
     Dosage: 15 MG, 3X/DAY
     Route: 048
  8. CORTRIL [Concomitant]
     Active Substance: HYDROCORTISONE
     Dosage: 10 MG, 1X/DAY
     Route: 048
  9. TOLEDOMIN [Concomitant]
     Active Substance: MILNACIPRAN HYDROCHLORIDE
     Dosage: 50 MG, 2X/DAY
     Route: 048
  10. INNOLET [Concomitant]
     Active Substance: INSULIN NOS
     Dosage: 8 UNK, 2X/DAY
     Route: 058
  11. MYCOBUTIN [Suspect]
     Active Substance: RIFABUTIN
     Dosage: 300 MG, 2X/DAY
     Route: 048
     Dates: start: 20081020, end: 20081031
  12. DEPAS [Concomitant]
     Active Substance: ETIZOLAM
     Dosage: 1 MG, 1X/DAY
     Route: 048
  13. TUBERACTIN [Concomitant]
     Active Substance: ENVIOMYCIN SULFATE
     Indication: INFECTION
     Dosage: 1000 MG, 1X/DAY
     Route: 030
     Dates: start: 20070823

REACTIONS (7)
  - Depression [Recovering/Resolving]
  - Altered state of consciousness [Recovered/Resolved]
  - Diarrhoea [Recovered/Resolved]
  - Thirst [Unknown]
  - Oral pain [Recovered/Resolved]
  - Blood magnesium decreased [Not Recovered/Not Resolved]
  - Neck pain [Unknown]

NARRATIVE: CASE EVENT DATE: 20081015
